FAERS Safety Report 9705778 (Version 1)
Quarter: 2013Q4

REPORT INFORMATION
  Report Type: Spontaneous
  Country: US (occurrence: US)
  Receive Date: 20131122
  Receipt Date: 20131122
  Transmission Date: 20140711
  Serious: Yes (Death)
  Sender: FDA-Public Use
  Company Number: US-CELGENEUS-163-21880-13113667

PATIENT
  Age: 18 Year
  Sex: Female

DRUGS (2)
  1. REVLIMID [Suspect]
     Indication: HODGKIN^S DISEASE
     Dosage: 10 MILLIGRAM
     Route: 048
     Dates: start: 20130925, end: 2013
  2. REVLIMID [Suspect]
     Dosage: 5 MILLIGRAM
     Route: 048
     Dates: start: 201310, end: 2013

REACTIONS (1)
  - Death [Fatal]
